FAERS Safety Report 18180558 (Version 5)
Quarter: 2020Q3

REPORT INFORMATION
  Report Type: Spontaneous
  Country: US (occurrence: US)
  Receive Date: 20200821
  Receipt Date: 20200929
  Transmission Date: 20201103
  Serious: Yes (Hospitalization, Other)
  Sender: FDA-Public Use
  Company Number: US-PFIZER INC-2020082729

PATIENT
  Age: 49 Year
  Sex: Female
  Weight: 45.36 kg

DRUGS (3)
  1. DIAZEPAM. [Suspect]
     Active Substance: DIAZEPAM
     Indication: SEIZURE
     Dosage: 2 ML, 4X/DAY, (5MG/ML. 10ML MULTI?DOSE VIAL, 2ML 4 TIMES A DAY)
     Route: 030
  2. DIAZEPAM. [Suspect]
     Active Substance: DIAZEPAM
     Dosage: 2 ML, 4X/DAY, (5MG/ML. 10ML MULTI?DOSE VIAL, 2ML 4 TIMES A DAY)
     Route: 030
  3. DIAZEPAM. [Suspect]
     Active Substance: DIAZEPAM
     Indication: ANXIETY
     Dosage: 2 ML, 4X/DAY, (5MG/ML. 10ML MULTI?DOSE VIAL, 2ML 4 TIMES A DAY)
     Route: 030

REACTIONS (8)
  - Panic attack [Unknown]
  - Intestinal perforation [Unknown]
  - Dementia [Unknown]
  - Pain [Unknown]
  - Product dose omission issue [Unknown]
  - Insomnia [Unknown]
  - Post procedural complication [Unknown]
  - Product closure issue [Unknown]
